FAERS Safety Report 23887859 (Version 6)
Quarter: 2024Q3

REPORT INFORMATION
  Report Type: Spontaneous
  Country: DE (occurrence: DE)
  Receive Date: 20240523
  Receipt Date: 20240916
  Transmission Date: 20241017
  Serious: Yes (Hospitalization, Other)
  Sender: ROCHE
  Company Number: DE-002147023-NVSC2024DE104877

PATIENT
  Age: 63 Year
  Sex: Male

DRUGS (9)
  1. LUCENTIS [Suspect]
     Active Substance: RANIBIZUMAB
     Indication: Neovascular age-related macular degeneration
     Dosage: 4 DOSAGE FORM, Q4W (EYE)
     Route: 050
     Dates: start: 2019, end: 2019
  2. LUCENTIS [Suspect]
     Active Substance: RANIBIZUMAB
     Dosage: 4 DOSAGE FORM (34X EVERY 4 WEEKS) (EYE)
     Route: 050
     Dates: start: 2023, end: 2023
  3. LUCENTIS [Suspect]
     Active Substance: RANIBIZUMAB
     Dosage: 4 DOSAGE FORM (3X) (EYE)
     Route: 050
     Dates: start: 202401, end: 202404
  4. LUCENTIS [Suspect]
     Active Substance: RANIBIZUMAB
     Dosage: UNK (0.5 MG/0.05 ML) (ONCE)
     Route: 050
     Dates: start: 20230907, end: 20230907
  5. LUCENTIS [Suspect]
     Active Substance: RANIBIZUMAB
     Dosage: UNK (0.5 MG/0.05 ML) (ONCE)
     Route: 050
     Dates: start: 20231019, end: 20231019
  6. LUCENTIS [Suspect]
     Active Substance: RANIBIZUMAB
     Dosage: UNK (0.5 MG/0.05 ML) (ONCE)
     Route: 050
     Dates: start: 20231114, end: 20231114
  7. LUCENTIS [Suspect]
     Active Substance: RANIBIZUMAB
     Dosage: UNK (ONCE)
     Route: 050
     Dates: start: 20240115, end: 20240115
  8. LUCENTIS [Suspect]
     Active Substance: RANIBIZUMAB
     Dosage: UNK (ONCE)
     Route: 050
     Dates: start: 20240219, end: 20240219
  9. LUCENTIS [Suspect]
     Active Substance: RANIBIZUMAB
     Dosage: UNK (ONCE)
     Route: 050
     Dates: start: 20240325, end: 20240325

REACTIONS (5)
  - Seizure like phenomena [Unknown]
  - Seizure [Unknown]
  - Condition aggravated [Not Recovered/Not Resolved]
  - Drug ineffective [Unknown]
  - Neovascular age-related macular degeneration [Unknown]

NARRATIVE: CASE EVENT DATE: 20230101
